FAERS Safety Report 25968483 (Version 1)
Quarter: 2025Q4

REPORT INFORMATION
  Report Type: Report from Study
  Country: JP (occurrence: JP)
  Receive Date: 20251028
  Receipt Date: 20251028
  Transmission Date: 20260118
  Serious: Yes (Other)
  Sender: ALEXION PHARMACEUTICALS
  Company Number: JP-ASTRAZENECA-202510JPN014816JP

PATIENT
  Age: 28 Year
  Sex: Female

DRUGS (5)
  1. ANIFROLUMAB [Suspect]
     Active Substance: ANIFROLUMAB
     Indication: Systemic lupus erythematosus
     Dosage: 300 MILLIGRAM
  2. DAYVIGO [Concomitant]
     Active Substance: LEMBOREXANT
     Indication: Insomnia
     Dosage: 5 MILLIGRAM
  3. VONOPRAZAN FUMARATE [Concomitant]
     Active Substance: VONOPRAZAN FUMARATE
     Dosage: 10 MILLIGRAM
  4. ALFACALCIDOL [Concomitant]
     Active Substance: ALFACALCIDOL
     Dosage: 0.25 MCG
  5. LOXOPROFEN [Concomitant]
     Active Substance: LOXOPROFEN
     Dosage: AS REQUIRED

REACTIONS (8)
  - Gastric varices [Unknown]
  - Rhinorrhoea [Unknown]
  - Diarrhoea [Unknown]
  - Cough [Unknown]
  - Pulmonary arterial hypertension [Unknown]
  - Heavy menstrual bleeding [Unknown]
  - Iron deficiency anaemia [Unknown]
  - Gastric varices [Unknown]
